FAERS Safety Report 8235477-7 (Version None)
Quarter: 2012Q1

REPORT INFORMATION
  Report Type: 
  Country: None (occurrence: None)
  Receive Date: 20120326
  Receipt Date: 20120319
  Transmission Date: 20120608
  Serious: Yes (Other)
  Sender: FDA-Public Use
  Company Number: US-PFIZER INC-2011211485

PATIENT
  Sex: Female
  Weight: 95.238 kg

DRUGS (6)
  1. DILANTIN [Suspect]
     Dosage: 200 MG, 2X/DAY
     Route: 048
     Dates: start: 20111001
  2. KEPPRA [Concomitant]
     Indication: CONVULSION
     Dosage: UNK
  3. PHENOBARBITAL [Concomitant]
     Indication: CONVULSION
     Dosage: UNK
  4. TOPAMAX [Concomitant]
     Indication: CONVULSION
     Dosage: UNK
  5. ATENOLOL [Concomitant]
     Dosage: UNK
  6. DILANTIN [Suspect]
     Indication: CONVULSION
     Dosage: 200 MG, 2X/DAY
     Route: 048
     Dates: start: 19981101, end: 20111001

REACTIONS (8)
  - FALL [None]
  - DRUG LEVEL BELOW THERAPEUTIC [None]
  - STRESS [None]
  - CONTUSION [None]
  - DISCOMFORT [None]
  - ABDOMINAL PAIN UPPER [None]
  - CONVULSION [None]
  - DRUG LEVEL INCREASED [None]
